FAERS Safety Report 7727422-5 (Version None)
Quarter: 2011Q3

REPORT INFORMATION
  Report Type: 
  Country: None (occurrence: None)
  Receive Date: 20110902
  Receipt Date: 20110822
  Transmission Date: 20111222
  Serious: Yes (Death, Other)
  Sender: FDA-Public Use
  Company Number: AU-PFIZER INC-2011205335

PATIENT
  Sex: Female

DRUGS (6)
  1. PHENOBARBITAL TAB [Concomitant]
     Dosage: UNK MG, UNK
  2. MORPHINE [Suspect]
     Indication: PRODUCT USED FOR UNKNOWN INDICATION
     Dosage: UNK
     Route: 065
  3. DIAZEPAM [Suspect]
     Indication: PRODUCT USED FOR UNKNOWN INDICATION
     Dosage: UNK
     Route: 065
  4. MORPHINE SULFATE [Suspect]
     Dosage: UNK
     Route: 065
  5. CODALGIN [Suspect]
     Indication: PRODUCT USED FOR UNKNOWN INDICATION
     Dosage: UNK
     Route: 065
  6. PROMETHAZINE HYDROCHLORIDE [Suspect]
     Dosage: 100 MG, UNK
     Route: 030

REACTIONS (2)
  - DRUG ABUSE [None]
  - RESPIRATORY DEPRESSION [None]
